FAERS Safety Report 14944036 (Version 2)
Quarter: 2018Q2

REPORT INFORMATION
  Report Type: Report from Study
  Country: CA (occurrence: CA)
  Receive Date: 20180528
  Receipt Date: 20180622
  Transmission Date: 20180711
  Serious: Yes (Death)
  Sender: FDA-Public Use
  Company Number: CA-HLSUS-2018-CA-000784

PATIENT
  Age: 71 Year
  Sex: Male
  Weight: 47.1 kg

DRUGS (9)
  1. SYNTHROID [Concomitant]
     Active Substance: LEVOTHYROXINE SODIUM
     Dosage: 0.025 DAILY
  2. CLOZARIL [Suspect]
     Active Substance: CLOZAPINE
     Dosage: 425MG AT BED TIME AND 50 MG AT DINNER AND SUPPER
     Route: 048
     Dates: start: 20110309, end: 20180418
  3. DXILANT [Concomitant]
     Dosage: 30 DAILY
  4. MOTILIUM [Concomitant]
     Active Substance: DOMPERIDONE
     Dosage: 10 BID
  5. LANTUS [Concomitant]
     Active Substance: INSULIN GLARGINE
     Dosage: 8 U
  6. RISPERDAL [Concomitant]
     Active Substance: RISPERIDONE
     Dosage: 2 BID
  7. EPIVAL [Concomitant]
     Active Substance: DIVALPROEX SODIUM
     Dosage: 500MG TID
  8. DESYREL [Concomitant]
     Active Substance: TRAZODONE HYDROCHLORIDE
     Dosage: 12.5 BID PRN
  9. TYLENOL [Concomitant]
     Active Substance: ACETAMINOPHEN
     Dosage: PRN

REACTIONS (1)
  - Pneumonia aspiration [Fatal]
